FAERS Safety Report 16661733 (Version 1)
Quarter: 2019Q3

REPORT INFORMATION
  Report Type: Spontaneous
  Country: US (occurrence: US)
  Receive Date: 20190802
  Receipt Date: 20190802
  Transmission Date: 20191004
  Serious: Yes (Hospitalization, Other)
  Sender: FDA-Public Use
  Company Number: US-SA-2019SA205802

PATIENT
  Age: 65 Year
  Sex: Female
  Weight: 73.5 kg

DRUGS (16)
  1. PANTOPRAZOLE SODIUM. [Concomitant]
     Active Substance: PANTOPRAZOLE SODIUM
     Dosage: UNK
     Route: 065
  2. METOPROLOL TARTRATE. [Concomitant]
     Active Substance: METOPROLOL TARTRATE
     Dosage: UNK
     Route: 065
  3. MECLIZINE [Concomitant]
     Active Substance: MECLIZINE HYDROCHLORIDE
     Dosage: UNK
     Route: 065
  4. SYNTHROID [Concomitant]
     Active Substance: LEVOTHYROXINE SODIUM
     Dosage: UNK
     Route: 065
  5. REPATHA [Suspect]
     Active Substance: EVOLOCUMAB
     Indication: PRODUCT USED FOR UNKNOWN INDICATION
     Dosage: 140 MG, QOW (Q2WK)
     Route: 058
     Dates: start: 20170608, end: 20190517
  6. POTASSIUM CHLORIDE. [Concomitant]
     Active Substance: POTASSIUM CHLORIDE
     Dosage: UNK
     Route: 065
  7. VASCEPA [Concomitant]
     Active Substance: ICOSAPENT ETHYL
     Dosage: UNK
     Route: 065
  8. RANITIDINE. [Concomitant]
     Active Substance: RANITIDINE
     Dosage: UNK
     Route: 065
  9. CYCLOBENZAPRINE. [Concomitant]
     Active Substance: CYCLOBENZAPRINE
     Dosage: UNK
     Route: 065
  10. INVOKANA [Concomitant]
     Active Substance: CANAGLIFLOZIN
     Dosage: UNK
     Route: 065
  11. RAMIPRIL. [Concomitant]
     Active Substance: RAMIPRIL
     Dosage: UNK
     Route: 065
  12. PLAVIX [Suspect]
     Active Substance: CLOPIDOGREL BISULFATE
     Indication: BLOOD DISORDER
     Dosage: 75 MG, QD
     Route: 065
  13. CLOPIDOGREL [Concomitant]
     Active Substance: CLOPIDOGREL BISULFATE
     Dosage: UNK
     Route: 065
  14. FENOFIBRIC ACID. [Concomitant]
     Active Substance: FENOFIBRIC ACID
     Dosage: UNK
     Route: 065
  15. LIOTHYRONINE [Concomitant]
     Active Substance: LIOTHYRONINE
     Dosage: UNK
     Route: 065
  16. BABY ASPIRIN [Concomitant]
     Active Substance: ASPIRIN
     Dosage: UNK
     Route: 065

REACTIONS (29)
  - Neuropathy peripheral [Not Recovered/Not Resolved]
  - Haemoptysis [Unknown]
  - Mass [Unknown]
  - Sinus congestion [Unknown]
  - Stress [Unknown]
  - Rhinorrhoea [Unknown]
  - Blood urine present [Recovering/Resolving]
  - Asthenia [Unknown]
  - Appetite disorder [Unknown]
  - Dyspnoea [Unknown]
  - Tonsillar ulcer [Unknown]
  - Muscle spasms [Unknown]
  - Haematuria [Not Recovered/Not Resolved]
  - Headache [Unknown]
  - Disturbance in attention [Unknown]
  - Pulmonary mass [Unknown]
  - Myalgia [Unknown]
  - Mouth ulceration [Not Recovered/Not Resolved]
  - Swelling [Recovering/Resolving]
  - Sneezing [Unknown]
  - Neck injury [Unknown]
  - Oedema [Unknown]
  - Dyspepsia [Unknown]
  - Fatigue [Not Recovered/Not Resolved]
  - Pain [Not Recovered/Not Resolved]
  - Insomnia [Unknown]
  - Gastrooesophageal reflux disease [Unknown]
  - Pharyngeal ulceration [Recovering/Resolving]
  - Haematemesis [Unknown]

NARRATIVE: CASE EVENT DATE: 20190507
